FAERS Safety Report 15359046 (Version 1)
Quarter: 2018Q3

REPORT INFORMATION
  Report Type: Spontaneous
  Country: DE (occurrence: DE)
  Receive Date: 20180906
  Receipt Date: 20180906
  Transmission Date: 20181010
  Serious: Yes (Death)
  Sender: FDA-Public Use
  Company Number: DE-AMGEN-DEUSP2018123731

PATIENT
  Sex: Male
  Weight: 30 kg

DRUGS (1)
  1. ENBREL [Suspect]
     Active Substance: ETANERCEPT
     Indication: IDIOPATHIC PNEUMONIA SYNDROME
     Dosage: 0.4 MG/KG PRO DF 2 X WEEKLY
     Route: 058

REACTIONS (2)
  - Chronic lymphocytic inflammation with pontine perivascular enhancement responsive to steroids [Fatal]
  - Product use in unapproved indication [Unknown]

NARRATIVE: CASE EVENT DATE: 20180804
